FAERS Safety Report 13975036 (Version 1)
Quarter: 2017Q3

REPORT INFORMATION
  Report Type: Spontaneous
  Country: DE (occurrence: DE)
  Receive Date: 20170915
  Receipt Date: 20170915
  Transmission Date: 20171128
  Serious: Yes (Hospitalization, Other)
  Sender: FDA-Public Use
  Company Number: DE-AMGEN-DEUSP2017138288

PATIENT
  Sex: Male

DRUGS (11)
  1. CYCLOPHOSPHAMIDE. [Suspect]
     Active Substance: CYCLOPHOSPHAMIDE
     Dosage: 1403 MG, QD (1 IN 1 D)
     Route: 042
     Dates: start: 20130927, end: 20130927
  2. DOXORUBICINE [Suspect]
     Active Substance: DOXORUBICIN
     Dosage: 94 MG, QD (1 IN 1 D)
     Route: 042
     Dates: start: 20130927, end: 20130927
  3. VINCRISTINE [Suspect]
     Active Substance: VINCRISTINE
     Dosage: 2 MG, QD (1 IN 1 D)
     Route: 042
     Dates: start: 20130927, end: 20130927
  4. DOXORUBICINE [Suspect]
     Active Substance: DOXORUBICIN
     Indication: B-CELL LYMPHOMA
     Dosage: 95 MG, QD (1 IN 1 D)
     Route: 042
     Dates: start: 20130911, end: 20130911
  5. PREDNISOLONE. [Suspect]
     Active Substance: PREDNISOLONE
     Dosage: 100 MG, 1 IN 4 D
     Route: 048
     Dates: start: 20130927, end: 20130930
  6. FILGRASTIM [Suspect]
     Active Substance: FILGRASTIM
     Dosage: 30 MG, QD (1 IN 1 D)
     Route: 058
     Dates: start: 20130925, end: 20130926
  7. CYCLOPHOSPHAMIDE. [Suspect]
     Active Substance: CYCLOPHOSPHAMIDE
     Indication: B-CELL LYMPHOMA
     Dosage: 1418 MG, QD (1 IN 1 D)
     Route: 042
     Dates: start: 20130911, end: 20130911
  8. VINCRISTINE [Suspect]
     Active Substance: VINCRISTINE
     Indication: B-CELL LYMPHOMA
     Dosage: 2 MG, QD (1 IN 1 D)
     Route: 042
     Dates: start: 20130911, end: 20130911
  9. RITUXIMAB. [Suspect]
     Active Substance: RITUXIMAB
     Indication: B-CELL LYMPHOMA
     Dosage: 709 MG, QD (1 IN 1 D)
     Route: 042
     Dates: start: 20130909, end: 20130909
  10. FILGRASTIM [Suspect]
     Active Substance: FILGRASTIM
     Indication: B-CELL LYMPHOMA
     Dosage: 48 MG, QD (1 IN 1 D)
     Route: 058
     Dates: start: 20130914, end: 20130918
  11. PREDNISOLONE. [Suspect]
     Active Substance: PREDNISOLONE
     Indication: B-CELL LYMPHOMA
     Dosage: 500 MG, 1 IN 5 D
     Route: 048
     Dates: start: 20130911, end: 20130915

REACTIONS (5)
  - Febrile neutropenia [Unknown]
  - Haemoglobin decreased [Not Recovered/Not Resolved]
  - Haemoptysis [Not Recovered/Not Resolved]
  - Haematemesis [Not Recovered/Not Resolved]
  - Leukopenia [Recovered/Resolved]

NARRATIVE: CASE EVENT DATE: 20130925
